FAERS Safety Report 8764699 (Version 1)
Quarter: 2012Q4

REPORT INFORMATION
  Report Type: 
  Country: FR (occurrence: FR)
  Receive Date: 20120831
  Receipt Date: 20120831
  Transmission Date: 20130627
  Serious: Yes (Hospitalization, Other)
  Sender: FDA-Public Use
  Company Number: FR-PFIZER INC-2012208112

PATIENT
  Age: 73 Year
  Sex: Female

DRUGS (8)
  1. XANAX [Suspect]
     Dosage: 0.25 mg, 3x/day
     Route: 048
     Dates: start: 20120704, end: 20120730
  2. TAHOR [Suspect]
     Dosage: 10 mg, 1x/day
     Route: 048
     Dates: end: 20120730
  3. CIFLOX [Suspect]
     Dosage: UNK
     Route: 048
     Dates: start: 20120719, end: 20120723
  4. KARDEGIC [Concomitant]
  5. ALDACTAZINE [Concomitant]
  6. DEBRIDAT [Concomitant]
  7. IMOVANE [Concomitant]
  8. METEOSPASMYL [Concomitant]

REACTIONS (4)
  - Hepatitis [Recovering/Resolving]
  - Pyelonephritis [Recovering/Resolving]
  - Urinary retention [Recovering/Resolving]
  - Sepsis syndrome [Recovering/Resolving]
